FAERS Safety Report 5523488-1 (Version None)
Quarter: 2007Q4

REPORT INFORMATION
  Report Type: 
  Country: None (occurrence: None)
  Receive Date: 20071121
  Receipt Date: 20071119
  Transmission Date: 20080405
  Serious: Yes (Other)
  Sender: FDA-Public Use
  Company Number: US-BRISTOL-MYERS SQUIBB COMPANY-13987169

PATIENT

DRUGS (2)
  1. COUMADIN [Suspect]
  2. HEPARIN [Suspect]

REACTIONS (2)
  - ATRIAL THROMBOSIS [None]
  - EMBOLISM VENOUS [None]
